FAERS Safety Report 6396702-0 (Version None)
Quarter: 2009Q4

REPORT INFORMATION
  Report Type: 
  Country: None (occurrence: None)
  Receive Date: 20091008
  Receipt Date: 20091008
  Transmission Date: 20100525
  Serious: Yes (Hospitalization)
  Sender: FDA-Public Use
  Company Number: None

PATIENT
  Sex: Male
  Weight: 12.2 kg

DRUGS (7)
  1. CARBOPLATIN [Suspect]
     Dosage: 824 MG
  2. CYCLOPHOSPHAMIDE [Suspect]
     Dosage: 3240 MG
  3. ETOPOSIDE [Suspect]
     Dosage: 664 MG
  4. C-CSF (FILGRASTIM, AMGEN) [Suspect]
     Dosage: 1331 MCG
  5. MELPHALAN [Suspect]
     Dosage: 99 MG
  6. MESNA [Suspect]
     Dosage: 1944 MG
  7. THIOTEPA [Suspect]
     Dosage: 486 MG

REACTIONS (7)
  - BLOOD PRESSURE INADEQUATELY CONTROLLED [None]
  - FLUID OVERLOAD [None]
  - HYPERTENSION [None]
  - LEFT VENTRICULAR DYSFUNCTION [None]
  - PERICARDIAL EFFUSION [None]
  - RENAL FAILURE [None]
  - THROMBOTIC MICROANGIOPATHY [None]
